FAERS Safety Report 7103395-3 (Version None)
Quarter: 2010Q4

REPORT INFORMATION
  Report Type: 
  Country: None (occurrence: None)
  Receive Date: 20101115
  Receipt Date: 20100930
  Transmission Date: 20110411
  Serious: Yes (Other)
  Sender: FDA-Public Use
  Company Number: CA-BAYER-201035654NA

PATIENT

DRUGS (1)
  1. NIMOTOP [Suspect]
     Indication: PRODUCT USED FOR UNKNOWN INDICATION
     Dosage: AS USED: 120 MG  UNIT DOSE: 60 MG

REACTIONS (1)
  - INTRACRANIAL HYPOTENSION [None]
